FAERS Safety Report 9845107 (Version 1)
Quarter: 2014Q1

REPORT INFORMATION
  Report Type: Spontaneous
  Country: AT (occurrence: None)
  Receive Date: 20140122
  Receipt Date: 20140122
  Transmission Date: 20141002
  Serious: Yes (Other)
  Sender: FDA-Public Use
  Company Number: VAL_02911_2014

PATIENT
  Age: 61 Year
  Sex: Male

DRUGS (2)
  1. CALCITROL [Suspect]
     Indication: HYPERPARATHYROIDISM
  2. CALCIUM-CONTAINING PHOSPHATE BINDERS [Suspect]
     Indication: HYPERPARATHYROIDISM

REACTIONS (7)
  - Hypercalcaemia [None]
  - Calciphylaxis [None]
  - Ulcer [None]
  - Nausea [None]
  - Endocarditis [None]
  - Pneumonia aspiration [None]
  - Sudden cardiac death [None]
